FAERS Safety Report 9022944 (Version 1)
Quarter: 2013Q1

REPORT INFORMATION
  Report Type: Spontaneous
  Country: US (occurrence: US)
  Receive Date: 20130120
  Receipt Date: 20130120
  Transmission Date: 20140127
  Serious: No
  Sender: FDA-Public Use
  Company Number: US-ALLERGAN-1216349US

PATIENT
  Age: 55 Year
  Sex: Female

DRUGS (11)
  1. BOTOX? [Suspect]
     Indication: MIGRAINE
     Dosage: 50 UNITS, SINGLE
     Route: 030
     Dates: start: 20121120, end: 20121120
  2. FLEXERIL                           /00428402/ [Concomitant]
     Indication: PRODUCT USED FOR UNKNOWN INDICATION
     Dosage: 10 MG, UNK
     Route: 048
  3. VALIUM                             /00017001/ [Concomitant]
     Indication: PRODUCT USED FOR UNKNOWN INDICATION
     Dosage: 10 MG, PRN
     Route: 048
  4. MECLIZINE                          /00072801/ [Concomitant]
     Indication: PRODUCT USED FOR UNKNOWN INDICATION
     Dosage: 20 MG, PRN
     Route: 048
  5. PHENERGAN                          /00033001/ [Concomitant]
     Indication: PRODUCT USED FOR UNKNOWN INDICATION
     Dosage: 25 MG, PRN
     Route: 048
  6. IMITREX                            /01044801/ [Concomitant]
     Indication: PRODUCT USED FOR UNKNOWN INDICATION
     Dosage: 20 MG, PRN
     Route: 045
  7. NORCO [Concomitant]
     Indication: ANALGESIC THERAPY
     Dosage: UNK UNK, PRN
  8. SYNTHROID [Concomitant]
     Indication: THYROID CANCER
     Dosage: 100 ?G, QAM
     Route: 048
  9. OXYCONTIN [Concomitant]
     Indication: ANALGESIC THERAPY
     Dosage: 10 MG, Q12H
  10. TORADOL [Concomitant]
     Indication: ANALGESIC THERAPY
     Dosage: 60 MG, Q WEEK
  11. PHENERGAN                          /00033001/ [Concomitant]
     Indication: ANALGESIC THERAPY
     Dosage: 4 MG, Q WEEK

REACTIONS (3)
  - Incorrect dose administered [Unknown]
  - Injection site pain [Unknown]
  - Injection site pain [Unknown]
